FAERS Safety Report 6132708-4 (Version None)
Quarter: 2009Q1

REPORT INFORMATION
  Report Type: 
  Country: None (occurrence: None)
  Receive Date: 20090324
  Receipt Date: 20090324
  Transmission Date: 20090719
  Serious: Yes (Hospitalization)
  Sender: FDA-Public Use
  Company Number: None

PATIENT
  Age: 70 Year
  Sex: Female
  Weight: 83.9154 kg

DRUGS (6)
  1. CARTIA XT [Suspect]
     Indication: HYPERTENSION
     Dosage: 240 ONCE QD PO
     Route: 048
     Dates: start: 20090316
  2. DILTIAZEM [Concomitant]
  3. TIAZAC [Concomitant]
  4. VERAPAMIL [Concomitant]
  5. NORVASC [Concomitant]
  6. LISINOPRIL [Concomitant]

REACTIONS (4)
  - HEART RATE INCREASED [None]
  - HEART RATE IRREGULAR [None]
  - PALPITATIONS [None]
  - PRODUCT QUALITY ISSUE [None]
